FAERS Safety Report 8809094 (Version 2)
Quarter: 2012Q4

REPORT INFORMATION
  Report Type: 
  Country: US (occurrence: US)
  Receive Date: 20120926
  Receipt Date: 20120928
  Transmission Date: 20130627
  Serious: No
  Sender: FDA-Public Use
  Company Number: US-PFIZER INC-2012235145

PATIENT
  Age: 75 Year
  Sex: Female
  Weight: 77.1 kg

DRUGS (8)
  1. PREMARIN [Suspect]
     Indication: VAGINAL PROLAPSE
     Dosage: 1 g, 2x/week
     Route: 067
     Dates: start: 1999, end: 1999
  2. NORVASC [Concomitant]
     Indication: HYPERTENSION
     Dosage: UNK daily
  3. COUMADIN [Concomitant]
     Dosage: 5 mg, daily
  4. HYDROCHLOROTHIAZIDE [Concomitant]
     Dosage: UNK
  5. DIGOXIN [Concomitant]
     Indication: ATRIAL FIBRILLATION
     Dosage: UNK daily
     Dates: start: 1977
  6. ASPIRIN [Concomitant]
     Indication: ATRIAL FIBRILLATION
     Dosage: UNK daily
     Dates: start: 1977
  7. HYDROXYUREA [Concomitant]
     Dosage: UNK, daily
  8. FLECAINIDE [Concomitant]
     Indication: CARDIAC DISORDER
     Dosage: UNK

REACTIONS (2)
  - Vulvovaginal burning sensation [Recovered/Resolved]
  - Vulvovaginal erythema [Recovered/Resolved]
